FAERS Safety Report 11278111 (Version 2)
Quarter: 2015Q3

REPORT INFORMATION
  Report Type: Spontaneous
  Country: FR (occurrence: FR)
  Receive Date: 20150717
  Receipt Date: 20150917
  Transmission Date: 20151125
  Serious: Yes (Hospitalization)
  Sender: FDA-Public Use
  Company Number: FR-ROCHE-1609397

PATIENT
  Age: 60 Year
  Sex: Female

DRUGS (4)
  1. PACLITAXEL. [Suspect]
     Active Substance: PACLITAXEL
     Indication: BREAST CANCER METASTATIC
     Route: 042
     Dates: start: 201501
  2. AVASTIN [Suspect]
     Active Substance: BEVACIZUMAB
     Indication: BREAST CANCER METASTATIC
     Route: 042
     Dates: start: 201501
  3. PACLITAXEL. [Suspect]
     Active Substance: PACLITAXEL
     Route: 042
     Dates: start: 20150521
  4. PACLITAXEL. [Suspect]
     Active Substance: PACLITAXEL
     Dosage: CYCLE 4 DAY 15
     Route: 042
     Dates: start: 20150430

REACTIONS (2)
  - Dermatitis exfoliative [Recovering/Resolving]
  - Onycholysis [Not Recovered/Not Resolved]

NARRATIVE: CASE EVENT DATE: 20150424
